FAERS Safety Report 8056440-5 (Version None)
Quarter: 2012Q1

REPORT INFORMATION
  Report Type: 
  Country: None (occurrence: None)
  Receive Date: 20120119
  Receipt Date: 20120110
  Transmission Date: 20120608
  Serious: Yes (Hospitalization, Disabling, Other)
  Sender: FDA-Public Use
  Company Number: US-MERCK-1107USA03829

PATIENT
  Age: 79 Year
  Sex: Female
  Weight: 95 kg

DRUGS (6)
  1. NEXIUM [Concomitant]
     Route: 065
  2. FOSAMAX [Suspect]
     Route: 048
     Dates: start: 20080404
  3. FOSAMAX [Suspect]
     Indication: OSTEOPOROSIS
     Route: 048
     Dates: start: 20010101, end: 20081101
  4. FOSAMAX [Suspect]
     Indication: OSTEOPENIA
     Route: 048
     Dates: start: 20010101, end: 20081101
  5. ADVAIR DISKUS 100/50 [Concomitant]
     Route: 048
     Dates: start: 20030101
  6. ALLEGRA [Concomitant]
     Route: 048
     Dates: start: 20020101

REACTIONS (76)
  - COAGULOPATHY [None]
  - CHRONIC SINUSITIS [None]
  - MUSCLE SPASMS [None]
  - SPONDYLOLISTHESIS [None]
  - UPPER RESPIRATORY TRACT INFECTION [None]
  - OSTEOSCLEROSIS [None]
  - EDENTULOUS [None]
  - DIVERTICULUM [None]
  - PNEUMONIA PRIMARY ATYPICAL [None]
  - HYPERSENSITIVITY [None]
  - GASTROENTERITIS VIRAL [None]
  - SKIN LESION [None]
  - BRONCHOSPASM [None]
  - ARTHRITIS [None]
  - HEPATIC STEATOSIS [None]
  - VERTIGO [None]
  - FACIAL BONES FRACTURE [None]
  - NASAL CONGESTION [None]
  - HYPERCHOLESTEROLAEMIA [None]
  - GASTROOESOPHAGEAL REFLUX DISEASE [None]
  - DENTAL CARIES [None]
  - OSTEONECROSIS OF JAW [None]
  - ASTHMA [None]
  - GASTRITIS [None]
  - ABSCESS [None]
  - CYSTOCELE [None]
  - LIMB INJURY [None]
  - TENDONITIS [None]
  - DRUG HYPERSENSITIVITY [None]
  - EPISTAXIS [None]
  - BARRETT'S OESOPHAGUS [None]
  - CHRONIC OBSTRUCTIVE PULMONARY DISEASE [None]
  - IMPAIRED HEALING [None]
  - ARTHRALGIA [None]
  - ADVERSE DRUG REACTION [None]
  - CYSTITIS [None]
  - CELLULITIS [None]
  - MONARTHRITIS [None]
  - SPINAL OSTEOARTHRITIS [None]
  - DERMAL CYST [None]
  - PERIPHERAL VASCULAR DISORDER [None]
  - ORAL INFECTION [None]
  - HEAD INJURY [None]
  - FALL [None]
  - DIVERTICULITIS [None]
  - GASTRIC POLYPS [None]
  - RESPIRATORY DISORDER [None]
  - HIATUS HERNIA [None]
  - THERMAL BURN [None]
  - CORONARY ARTERY DISEASE [None]
  - HAEMATURIA [None]
  - INTERVERTEBRAL DISC DISORDER [None]
  - SWELLING FACE [None]
  - PLEURISY [None]
  - NODULE [None]
  - HYPERTENSION [None]
  - GINGIVAL RECESSION [None]
  - BONE LOSS [None]
  - OSTEOARTHRITIS [None]
  - SEDATION [None]
  - ABSCESS SOFT TISSUE [None]
  - BRONCHITIS [None]
  - PERIODONTAL DISEASE [None]
  - HYPERLIPIDAEMIA [None]
  - DEPRESSION [None]
  - CEREBROVASCULAR ACCIDENT [None]
  - SKIN CANCER [None]
  - CONJUNCTIVITIS [None]
  - COUGH [None]
  - LIVER FUNCTION TEST ABNORMAL [None]
  - URINARY TRACT INFECTION [None]
  - TOOTH DISORDER [None]
  - VITAMIN D DEFICIENCY [None]
  - NEPHROLITHIASIS [None]
  - LOCALISED INFECTION [None]
  - APHTHOUS STOMATITIS [None]
